FAERS Safety Report 9338850 (Version 2)
Quarter: 2013Q4

REPORT INFORMATION
  Report Type: Spontaneous
  Country: GB (occurrence: GB)
  Receive Date: 20130610
  Receipt Date: 20131105
  Transmission Date: 20140711
  Serious: Yes (Hospitalization)
  Sender: FDA-Public Use
  Company Number: GB-ELI_LILLY_AND_COMPANY-GB201305009703

PATIENT
  Age: 10 Day
  Sex: 0

DRUGS (1)
  1. OLANZAPINE [Suspect]
     Dosage: 10 MG, QD
     Route: 064

REACTIONS (4)
  - Lethargy [Not Recovered/Not Resolved]
  - Feeding disorder neonatal [Recovering/Resolving]
  - Drug withdrawal syndrome neonatal [Not Recovered/Not Resolved]
  - Foetal exposure during pregnancy [Recovered/Resolved]
